FAERS Safety Report 21294699 (Version 1)
Quarter: 2022Q3

REPORT INFORMATION
  Report Type: Report from Study
  Country: US (occurrence: US)
  Receive Date: 20220905
  Receipt Date: 20220905
  Transmission Date: 20221027
  Serious: Yes (Other)
  Sender: FDA-Public Use
  Company Number: US-ALLERGAN-2228238US

PATIENT
  Sex: Female

DRUGS (2)
  1. ATOGEPANT [Suspect]
     Active Substance: ATOGEPANT
     Indication: Product used for unknown indication
     Dosage: UNK
     Dates: start: 20220105
  2. ATOGEPANT [Suspect]
     Active Substance: ATOGEPANT
     Dosage: UNK

REACTIONS (5)
  - Suicidal ideation [Recovered/Resolved]
  - Anxiety [Recovered/Resolved]
  - Tension headache [Unknown]
  - Nausea [Recovered/Resolved]
  - Somnolence [Unknown]
